FAERS Safety Report 9321323 (Version 1)
Quarter: 2013Q2

REPORT INFORMATION
  Report Type: Report from Study
  Country: JP (occurrence: JP)
  Receive Date: 20130531
  Receipt Date: 20130531
  Transmission Date: 20140414
  Serious: Yes (Hospitalization)
  Sender: FDA-Public Use
  Company Number: JP-ASTELLAS-2012JP005062

PATIENT
  Age: 17 Year
  Sex: Female
  Weight: 29.2 kg

DRUGS (23)
  1. TACROLIMUS CAPSULES [Suspect]
     Indication: LUPUS NEPHRITIS
     Dosage: 2 MG, UNKNOWN/D
     Route: 048
     Dates: start: 20070222
  2. PREDNISOLONE [Concomitant]
     Indication: LUPUS NEPHRITIS
     Dosage: 7.5 MG, UNKNOWN/D
     Route: 048
     Dates: end: 20080131
  3. PREDNISOLONE [Concomitant]
     Dosage: 10 MG, UNKNOWN/D
     Route: 048
     Dates: start: 20080201, end: 20080227
  4. PREDNISOLONE [Concomitant]
     Dosage: 15 MG, UNKNOWN/D
     Route: 048
     Dates: start: 20080228, end: 20080327
  5. PREDNISOLONE [Concomitant]
     Dosage: 12.5 MG, UNKNOWN/D
     Route: 048
     Dates: start: 20080328, end: 20080424
  6. PREDNISOLONE [Concomitant]
     Dosage: 10 MG, UNKNOWN/D
     Route: 048
     Dates: start: 20080425, end: 20121211
  7. PREDNISOLONE [Concomitant]
     Dosage: 35 MG, UNKNOWN/D
     Route: 048
     Dates: start: 20121215, end: 20121217
  8. PREDNISOLONE [Concomitant]
     Dosage: 25 MG, UNKNOWN/D
     Route: 048
     Dates: start: 20121221, end: 20130104
  9. PREDNISOLONE [Concomitant]
     Dosage: 22.5 MG, UNKNOWN/D
     Route: 048
     Dates: start: 20130105, end: 20130121
  10. PREDNISOLONE [Concomitant]
     Dosage: 20 MG, UNKNOWN/D
     Route: 048
     Dates: start: 20130122
  11. METHYLPREDNISOLONE [Concomitant]
     Indication: LUPUS NEPHRITIS
     Dosage: UNK
     Route: 065
     Dates: start: 20121212, end: 20121214
  12. METHYLPREDNISOLONE [Concomitant]
     Dosage: UNK
     Route: 065
     Dates: start: 20121218, end: 20121220
  13. GASTER [Concomitant]
     Indication: PROPHYLAXIS
     Dosage: 20 MG, UNKNOWN/D
     Route: 048
     Dates: start: 20071227
  14. JUVELA [Concomitant]
     Indication: CHILLBLAINS
     Dosage: UNK
     Route: 061
     Dates: start: 20080228, end: 20080327
  15. JUVELA [Concomitant]
     Dosage: UNK
     Route: 061
  16. MOHRUS [Concomitant]
     Indication: BACK PAIN
     Dosage: UNK
     Route: 061
     Dates: start: 20080327, end: 20080427
  17. MOHRUS [Concomitant]
     Dosage: 20 MG, UID/QD
     Route: 061
  18. CELECOX [Concomitant]
     Indication: ARTHRALGIA
     Dosage: UNK
     Route: 048
     Dates: start: 20081225
  19. RINDERON-VG [Concomitant]
     Indication: ECZEMA
     Dosage: UNK
     Route: 061
     Dates: start: 20081225, end: 20090121
  20. RINDERON-VG [Concomitant]
     Dosage: UNK
     Route: 061
  21. NEUROTROPIN [Concomitant]
     Indication: FIBROMYALGIA
     Dosage: UNK
     Route: 048
  22. ONON [Concomitant]
     Indication: COLD URTICARIA
     Dosage: 450 MG, UNKNOWN/D
     Route: 048
     Dates: start: 20100722, end: 20111103
  23. IMIGRAN                            /01044802/ [Concomitant]
     Indication: MIGRAINE
     Dosage: 50 MG, PRN
     Route: 048
     Dates: end: 20120510

REACTIONS (4)
  - Off label use [Unknown]
  - Ulnar nerve palsy [Recovering/Resolving]
  - Migraine [Recovering/Resolving]
  - Insomnia [Recovering/Resolving]
